FAERS Safety Report 6356059-8 (Version None)
Quarter: 2009Q3

REPORT INFORMATION
  Report Type: 
  Country: None (occurrence: None)
  Receive Date: 20090910
  Receipt Date: 20090910
  Transmission Date: 20100115
  Serious: Yes (Death)
  Sender: FDA-Public Use
  Company Number: None

PATIENT
  Age: 28 Year
  Sex: Male
  Weight: 81.6475 kg

DRUGS (2)
  1. VICODIN [Suspect]
     Indication: DRUG DEPENDENCE
     Dosage: 7.5/750MG PO
     Route: 048
  2. VICODIN [Suspect]
     Indication: JOINT INJURY
     Dosage: 7.5/750MG PO
     Route: 048

REACTIONS (5)
  - DRUG ABUSE [None]
  - DRUG DEPENDENCE [None]
  - DRUG WITHDRAWAL SYNDROME [None]
  - OVERDOSE [None]
  - SELF-MEDICATION [None]
